FAERS Safety Report 10066474 (Version 2)
Quarter: 2014Q2

REPORT INFORMATION
  Report Type: Report from Study
  Country: JP (occurrence: JP)
  Receive Date: 20140408
  Receipt Date: 20140408
  Transmission Date: 20141212
  Serious: Yes (Other)
  Sender: FDA-Public Use
  Company Number: JP-ABBVIE-13P-087-1049991-00

PATIENT
  Age: 59 Year
  Sex: Female
  Weight: 38.6 kg

DRUGS (7)
  1. KLARICID TABLETS 200MG [Suspect]
     Indication: ATYPICAL MYCOBACTERIAL INFECTION
     Route: 048
     Dates: start: 20110126, end: 20110830
  2. KLARICID TABLETS 200MG [Suspect]
     Route: 048
     Dates: start: 20110126, end: 20110830
  3. KLARICID TABLETS 200MG [Suspect]
     Dates: start: 20110831, end: 20130131
  4. ESANBUTOL [Suspect]
     Indication: ATYPICAL MYCOBACTERIAL INFECTION
     Dates: start: 20110223, end: 20110831
  5. RIFAMPICIN [Concomitant]
     Indication: ATYPICAL MYCOBACTERIAL INFECTION
     Dates: start: 20110126, end: 20130131
  6. THYROID [Concomitant]
     Indication: HYPOTHYROIDISM
     Route: 048
  7. ETRETINATE [Concomitant]
     Indication: PSORIASIS
     Route: 048

REACTIONS (1)
  - Peripheral sensory neuropathy [Recovered/Resolved]
